FAERS Safety Report 10235983 (Version 1)
Quarter: 2014Q2

REPORT INFORMATION
  Report Type: Spontaneous
  Country: DE (occurrence: None)
  Receive Date: 20140611
  Receipt Date: 20140611
  Transmission Date: 20141212
  Serious: Yes (Other)
  Sender: FDA-Public Use
  Company Number: KAD201405-000468

PATIENT
  Age: 38 Year
  Sex: Female

DRUGS (4)
  1. RIBAVIRIN [Suspect]
     Indication: HEPATITIS E
     Dosage: DAY
  2. TACROLIMUS [Suspect]
     Indication: IMMUNOSUPPRESSION
  3. EVEROLIMUS [Suspect]
     Indication: IMMUNOSUPPRESSION
  4. PREDNISOLONE [Suspect]
     Indication: IMMUNOSUPPRESSION

REACTIONS (6)
  - Renal impairment [None]
  - Polyomavirus test positive [None]
  - Anaemia [None]
  - Disease recurrence [None]
  - Hepatic enzyme increased [None]
  - Platelet count decreased [None]
